FAERS Safety Report 8952967 (Version 1)
Quarter: 2012Q4

REPORT INFORMATION
  Report Type: 
  Country: US (occurrence: US)
  Receive Date: 20121203
  Receipt Date: 20121203
  Transmission Date: 20130627
  Serious: Yes (Hospitalization)
  Sender: FDA-Public Use
  Company Number: US-AMGEN-USASP2012076535

PATIENT
  Sex: Female

DRUGS (1)
  1. ENBREL [Suspect]
     Indication: RHEUMATOID ARTHRITIS
     Dosage: UNK UNK, qwk
     Dates: start: 20040101, end: 2004

REACTIONS (11)
  - Intervertebral disc protrusion [Recovered/Resolved]
  - Kidney infection [Recovered/Resolved]
  - Ankle fracture [Recovered/Resolved]
  - Nephrolithiasis [Recovered/Resolved]
  - Staphylococcal infection [Recovered/Resolved]
  - Sepsis [Recovered/Resolved]
  - Arthralgia [Not Recovered/Not Resolved]
  - Arthritis [Not Recovered/Not Resolved]
  - Cartilage injury [Not Recovered/Not Resolved]
  - Bone scan abnormal [Not Recovered/Not Resolved]
  - Central venous catheterisation [Recovered/Resolved]
